FAERS Safety Report 6635680-3 (Version None)
Quarter: 2010Q1

REPORT INFORMATION
  Report Type: 
  Country: None (occurrence: None)
  Receive Date: 20100312
  Receipt Date: 20100312
  Transmission Date: 20100710
  Serious: Yes (Hospitalization)
  Sender: FDA-Public Use
  Company Number: None

PATIENT
  Sex: Female
  Weight: 77.1115 kg

DRUGS (1)
  1. ACTONEL [Suspect]
     Indication: BONE DENSITY DECREASED
     Dosage: 35MG ONCE-A-WEEK

REACTIONS (4)
  - FALL [None]
  - FEMUR FRACTURE [None]
  - MOVEMENT DISORDER [None]
  - PAIN [None]
